FAERS Safety Report 5368298-3 (Version None)
Quarter: 2007Q2

REPORT INFORMATION
  Report Type: 
  Country: None (occurrence: None)
  Receive Date: 20070620
  Receipt Date: 20070611
  Transmission Date: 20071010
  Serious: Yes (Death)
  Sender: FDA-Public Use
  Company Number: 2007JP002710

PATIENT
  Age: 85 Year
  Sex: Female
  Weight: 57.5 kg

DRUGS (7)
  1. FUNGUARD (MICAFUNGIN) INJECTION [Suspect]
     Indication: FUNGAL INFECTION
     Dosage: 150 MG, IV DRIP
     Route: 041
     Dates: start: 20060607, end: 20070609
  2. DIFLUCAN [Concomitant]
  3. TIENAM (IMIPENEM, CILASTATIN SODIUM) [Concomitant]
  4. NEUPOGEN [Concomitant]
  5. NEORAL [Concomitant]
  6. LYMPHOGLOBULINE (ANTITHYMOCYTE IMMUNOGLOBULIN) [Concomitant]
  7. HYDROCORTISONE SODIUM SUCCINATE [Concomitant]

REACTIONS (3)
  - BLOOD LACTATE DEHYDROGENASE INCREASED [None]
  - CONDITION AGGRAVATED [None]
  - INFECTION [None]
